FAERS Safety Report 14605163 (Version 1)
Quarter: 2018Q1

REPORT INFORMATION
  Report Type: Report from Study
  Country: IE (occurrence: IE)
  Receive Date: 20180306
  Receipt Date: 20180306
  Transmission Date: 20180509
  Serious: Yes (Hospitalization)
  Sender: FDA-Public Use
  Company Number: PHHY2018IE030135

PATIENT
  Sex: Male

DRUGS (1)
  1. SANDOSTATIN LAR DEPOT [Suspect]
     Active Substance: OCTREOTIDE ACETATE
     Indication: CHYLOTHORAX
     Dosage: 30 MG, UNK
     Route: 065
     Dates: start: 20180202

REACTIONS (4)
  - Dyspnoea [Unknown]
  - Pneumonia [Unknown]
  - Product use in unapproved indication [Unknown]
  - Pneumothorax [Unknown]

NARRATIVE: CASE EVENT DATE: 20180219
